FAERS Safety Report 20290570 (Version 2)
Quarter: 2022Q1

REPORT INFORMATION
  Report Type: Spontaneous
  Country: JP (occurrence: JP)
  Receive Date: 20220104
  Receipt Date: 20220104
  Transmission Date: 20220423
  Serious: Yes (Death, Life-Threatening, Hospitalization, Other)
  Sender: FDA-Public Use
  Company Number: JP-MLMSERVICE-20211214-3269114-1

PATIENT
  Age: 69 Year
  Sex: Male

DRUGS (2)
  1. GEMCITABINE HYDROCHLORIDE [Suspect]
     Active Substance: GEMCITABINE HYDROCHLORIDE
     Indication: Lung adenocarcinoma
     Dosage: 750 MG/M2; 1,000 MG/ BODY) SCHEDULED EVERY 2 WEEKS AS SALVAGE THERAPY
     Dates: start: 201908, end: 202005
  2. VINORELBINE [Concomitant]
     Active Substance: VINORELBINE TARTRATE
     Indication: Lung adenocarcinoma
     Dosage: 25 MG/M2 (SCHEDULED EVERY 2 WEEKS AS SALVAGE THERAPY)
     Dates: start: 201908

REACTIONS (6)
  - Pericardial effusion [Fatal]
  - Pleural effusion [Fatal]
  - Intravascular haemolysis [Fatal]
  - Thrombotic microangiopathy [Fatal]
  - Hypertension [Fatal]
  - Renal tubular dysfunction [Fatal]

NARRATIVE: CASE EVENT DATE: 20200501
